FAERS Safety Report 11494351 (Version 2)
Quarter: 2015Q4

REPORT INFORMATION
  Report Type: Report from Study
  Country: BR (occurrence: BR)
  Receive Date: 20150911
  Receipt Date: 20151007
  Transmission Date: 20160304
  Serious: Yes (Other)
  Sender: FDA-Public Use
  Company Number: PHHY2015BR107974

PATIENT
  Age: 70 Year
  Sex: Female

DRUGS (1)
  1. FORASEQ [Suspect]
     Active Substance: BUDESONIDE\FORMOTEROL FUMARATE
     Indication: PRODUCT USED FOR UNKNOWN INDICATION
     Dosage: UNK (400 UG), EVERY 6 HOURS IF SHE HAS EPISODES OR 1 IN THE MORNING AND 1 AT NIGHT
     Route: 065

REACTIONS (4)
  - Hypersensitivity [Recovering/Resolving]
  - Asthma [Recovering/Resolving]
  - Device malfunction [Unknown]
  - Neoplasm malignant [Recovering/Resolving]

NARRATIVE: CASE EVENT DATE: 201401
